FAERS Safety Report 8499774-2 (Version None)
Quarter: 2012Q3

REPORT INFORMATION
  Report Type: 
  Country: None (occurrence: None)
  Receive Date: 20120703
  Receipt Date: 20120703
  Transmission Date: 20120928
  Serious: Yes (Other)
  Sender: FDA-Public Use
  Company Number: None

PATIENT
  Age: 63 Year
  Sex: Female
  Weight: 103.8737 kg

DRUGS (1)
  1. PROVENGE [Suspect]
     Indication: PROSTATE CANCER METASTATIC
     Dosage: ONE UNIT EVER OTHER WEEK X IV DRIP
     Route: 041
     Dates: start: 20120702, end: 20120702

REACTIONS (4)
  - TREMOR [None]
  - CHILLS [None]
  - PYREXIA [None]
  - BLOOD PRESSURE INCREASED [None]
